FAERS Safety Report 12300877 (Version 1)
Quarter: 2016Q2

REPORT INFORMATION
  Report Type: Spontaneous
  Country: CA (occurrence: CA)
  Receive Date: 20160425
  Receipt Date: 20160425
  Transmission Date: 20160815
  Serious: Yes (Hospitalization, Other)
  Sender: FDA-Public Use
  Company Number: CA-009507513-1604CAN013848

PATIENT
  Sex: Female

DRUGS (1)
  1. ZEPATIER [Suspect]
     Active Substance: ELBASVIR\GRAZOPREVIR
     Indication: HEPATITIS C
     Dosage: 1 TABLET (100/50 MG) DAILY
     Route: 048

REACTIONS (4)
  - Mass excision [Unknown]
  - Post procedural infection [Unknown]
  - Septic shock [Not Recovered/Not Resolved]
  - Staphylococcal infection [Not Recovered/Not Resolved]
